FAERS Safety Report 4689185-X (Version None)
Quarter: 2005Q2

REPORT INFORMATION
  Report Type: 
  Country: None (occurrence: None)
  Receive Date: 20050608
  Receipt Date: 20050301
  Transmission Date: 20051028
  Serious: No
  Sender: FDA-Public Use
  Company Number: 2005-BP-03157BP

PATIENT
  Sex: Male

DRUGS (10)
  1. SPIRIVA [Suspect]
     Indication: CHRONIC OBSTRUCTIVE PULMONARY DISEASE
     Dosage: 18 MCG (18 MCG, OD), IH
     Route: 055
     Dates: start: 20050301
  2. SPIRIVA [Suspect]
     Indication: EMPHYSEMA
     Dosage: 18 MCG (18 MCG, OD), IH
     Route: 055
     Dates: start: 20050301
  3. ALBUTEROL SULFATE AND IPRATROPIUM BROMIDE [Concomitant]
  4. REGULAR INSULIN [Concomitant]
  5. NPH INSULIN [Concomitant]
  6. ENALAPRIL MALEATE [Concomitant]
  7. METOPROLOL TARTRATE [Concomitant]
  8. ISOSORBIDE (ISOSORBIDE) [Concomitant]
  9. WARFARIN SODIUM [Concomitant]
  10. LASIX [Concomitant]

REACTIONS (2)
  - CHEST PAIN [None]
  - DYSPNOEA EXACERBATED [None]
